FAERS Safety Report 6979128-8 (Version None)
Quarter: 2010Q3

REPORT INFORMATION
  Report Type: 
  Country: None (occurrence: None)
  Receive Date: 20100913
  Receipt Date: 20100901
  Transmission Date: 20110219
  Serious: Yes (Other)
  Sender: FDA-Public Use
  Company Number: PHHY2010PT59528

PATIENT
  Age: 6 Year
  Sex: Female

DRUGS (1)
  1. METHYLPHENIDATE [Suspect]

REACTIONS (3)
  - AGITATION [None]
  - CHOREOATHETOSIS [None]
  - DYSTONIA [None]
